FAERS Safety Report 10766850 (Version 1)
Quarter: 2015Q1

REPORT INFORMATION
  Report Type: Spontaneous
  Country: FR (occurrence: FR)
  Receive Date: 20150205
  Receipt Date: 20150205
  Transmission Date: 20150721
  Serious: Yes (Hospitalization)
  Sender: FDA-Public Use
  Company Number: FR-PFIZER INC-2015044537

PATIENT
  Age: 77 Year
  Sex: Female

DRUGS (6)
  1. INIPOMP [Concomitant]
     Active Substance: PANTOPRAZOLE SODIUM
     Dosage: STRENGTH 20
  2. SERESTA [Suspect]
     Active Substance: OXAZEPAM
     Dosage: STRENGTH 10 MG
     Route: 048
     Dates: end: 20140728
  3. DUPHALAC [Suspect]
     Active Substance: LACTULOSE
     Dosage: 1 DF, 1X/DAY
     Route: 048
     Dates: end: 20140728
  4. ALDACTONE [Suspect]
     Active Substance: SPIRONOLACTONE
     Dosage: 50 MG, DAILY
     Route: 048
  5. LASILIX [Concomitant]
     Active Substance: FUROSEMIDE
     Dosage: 120 MG, UNK
     Route: 048
     Dates: end: 20140730
  6. AVLOCARDYL [Concomitant]
     Active Substance: PROPRANOLOL HYDROCHLORIDE

REACTIONS (2)
  - Depressed level of consciousness [Recovered/Resolved]
  - Apathy [Recovered/Resolved]

NARRATIVE: CASE EVENT DATE: 20140728
